FAERS Safety Report 6461437-2 (Version None)
Quarter: 2009Q4

REPORT INFORMATION
  Report Type: 
  Country: None (occurrence: None)
  Receive Date: 20091130
  Receipt Date: 20091120
  Transmission Date: 20100525
  Serious: Yes (Hospitalization)
  Sender: FDA-Public Use
  Company Number: FR-TEVA-214198ISR

PATIENT
  Sex: Male

DRUGS (18)
  1. VINCRISTINE [Suspect]
     Indication: ACUTE LYMPHOCYTIC LEUKAEMIA
     Route: 042
     Dates: start: 20090807
  2. VINCRISTINE [Suspect]
  3. METHOTREXATE [Suspect]
     Indication: ACUTE LYMPHOCYTIC LEUKAEMIA
     Route: 037
     Dates: start: 20090729
  4. METHOTREXATE [Suspect]
  5. DASATINIB [Suspect]
     Indication: ACUTE LYMPHOCYTIC LEUKAEMIA
     Route: 048
     Dates: start: 20090728, end: 20090816
  6. CYCLOPHOSPHAMIDE [Suspect]
     Indication: ACUTE LYMPHOCYTIC LEUKAEMIA
     Route: 042
     Dates: start: 20090728
  7. LENOGRASTIM [Suspect]
     Indication: ACUTE LYMPHOCYTIC LEUKAEMIA
     Route: 042
     Dates: start: 20090813, end: 20090819
  8. CYTARABINE [Concomitant]
     Indication: ACUTE LYMPHOCYTIC LEUKAEMIA
     Route: 037
     Dates: start: 20090807
  9. DEXAMETHASONE TAB [Concomitant]
     Indication: ACUTE LYMPHOCYTIC LEUKAEMIA
     Route: 048
     Dates: start: 20090728, end: 20090731
  10. DEXAMETHASONE TAB [Concomitant]
     Route: 048
     Dates: start: 20090807, end: 20090811
  11. DOXORUBICIN HCL [Concomitant]
     Indication: ACUTE LYMPHOCYTIC LEUKAEMIA
     Route: 042
     Dates: start: 20090731, end: 20090731
  12. METHYLPREDNISOLONE [Concomitant]
     Indication: ACUTE LYMPHOCYTIC LEUKAEMIA
     Route: 037
     Dates: start: 20090807
  13. PIPERACILLIN AND TAZOBACTAM [Concomitant]
     Indication: PYREXIA
     Dates: start: 20090729
  14. VANCOMYCIN [Concomitant]
     Indication: PYREXIA
     Dates: start: 20090729
  15. IMIPENEM [Concomitant]
     Indication: PYREXIA
     Dates: start: 20090814
  16. AMIKACIN [Concomitant]
     Indication: PYREXIA
     Dates: start: 20090814
  17. CASPOFUNGIN ACETATE [Concomitant]
     Indication: PYREXIA
     Dates: start: 20090816
  18. SPIRAMYCIN [Concomitant]
     Indication: PYREXIA
     Dates: start: 20090819, end: 20090825

REACTIONS (4)
  - INTERSTITIAL LUNG DISEASE [None]
  - OEDEMA PERIPHERAL [None]
  - PERICARDITIS [None]
  - PLEURAL EFFUSION [None]
